FAERS Safety Report 4277733-3 (Version None)
Quarter: 2004Q1

REPORT INFORMATION
  Report Type: 
  Country: None (occurrence: None)
  Receive Date: 20040121
  Receipt Date: 20040108
  Transmission Date: 20041129
  Serious: Yes (Other)
  Sender: FDA-Public Use
  Company Number: DE-SHR-03-018293

PATIENT
  Age: 38 Year
  Sex: Female
  Weight: 80 kg

DRUGS (1)
  1. MIRENA [Suspect]
     Indication: CONTRACEPTION
     Dosage: 20 UG/DAY, CONT, INTRA-UTERINE
     Route: 015
     Dates: start: 20001010

REACTIONS (8)
  - BENIGN HEPATIC NEOPLASM [None]
  - CHOLANGIOADENOMA [None]
  - HEPATIC CYST [None]
  - HEPATIC STEATOSIS [None]
  - HEPATITIS [None]
  - LIVER FUNCTION TEST ABNORMAL [None]
  - PRURITUS GENERALISED [None]
  - RENAL CYST [None]
